FAERS Safety Report 7282903-6 (Version None)
Quarter: 2011Q1

REPORT INFORMATION
  Report Type: 
  Country: None (occurrence: None)
  Receive Date: 20110209
  Receipt Date: 20100806
  Transmission Date: 20110831
  Serious: Yes (Hospitalization)
  Sender: FDA-Public Use
  Company Number: US-BAYER-201013989NA

PATIENT
  Sex: Female
  Weight: 77.098 kg

DRUGS (10)
  1. YASMIN [Suspect]
     Indication: MENSTRUAL CYCLE MANAGEMENT
  2. ADVIL LIQUI-GELS [Concomitant]
  3. XANAX [Concomitant]
     Indication: ANXIETY
     Dosage: UNK UNK, PRN
     Dates: start: 20080617
  4. TYLENOL REGULAR [Concomitant]
     Indication: PAIN
     Dosage: UNK UNK, PRN
     Dates: start: 20080617
  5. YASMIN [Suspect]
     Indication: PREMENSTRUAL SYNDROME
     Dosage: UNK
     Route: 048
     Dates: start: 20080108, end: 20080601
  6. BENADRYL N [Concomitant]
     Indication: INSOMNIA
     Dosage: UNK
     Dates: start: 20080617
  7. CELEXA [Concomitant]
     Indication: PREMENSTRUAL SYNDROME
     Dosage: 20 MG, UNK
  8. CELEXA [Concomitant]
     Indication: DEPRESSION
  9. ALPRAZOLAM [Concomitant]
     Dosage: 0.5 DF, UNK
  10. LORTAB [Concomitant]
     Indication: PAIN
     Dosage: UNK UNK, Q4HR
     Dates: start: 20080617

REACTIONS (2)
  - PULMONARY EMBOLISM [None]
  - PULMONARY INFARCTION [None]
